FAERS Safety Report 14128318 (Version 1)
Quarter: 2017Q4

REPORT INFORMATION
  Report Type: Spontaneous
  Country: US (occurrence: US)
  Receive Date: 20171026
  Receipt Date: 20171026
  Transmission Date: 20180321
  Serious: Yes (Death)
  Sender: FDA-Public Use
  Company Number: US-ROCHE-2015012

PATIENT
  Age: 81 Year
  Sex: Male

DRUGS (1)
  1. ESBRIET [Suspect]
     Active Substance: PIRFENIDONE
     Indication: IDIOPATHIC PULMONARY FIBROSIS
     Dosage: DOSE:534MG/534MG/801MG,ONGOING:UNKNOWN
     Route: 048
     Dates: start: 20160302

REACTIONS (1)
  - Death [Fatal]

NARRATIVE: CASE EVENT DATE: 20171023
